FAERS Safety Report 6407676-8 (Version None)
Quarter: 2009Q4

REPORT INFORMATION
  Report Type: 
  Country: None (occurrence: None)
  Receive Date: 20091020
  Receipt Date: 20091006
  Transmission Date: 20100525
  Serious: Yes (Life-Threatening)
  Sender: FDA-Public Use
  Company Number: TN-MYLANLABS-2009S1017466

PATIENT
  Age: 24 Year
  Sex: Female

DRUGS (2)
  1. FUROSEMIDE [Suspect]
     Indication: LUPUS NEPHRITIS
     Dosage: 20 MG/DAY
  2. PREDNISONE TAB [Concomitant]
     Indication: LUPUS NEPHRITIS
     Dosage: 1 MG/KG/DAY

REACTIONS (1)
  - TOXIC EPIDERMAL NECROLYSIS [None]
